FAERS Safety Report 6337093-0 (Version None)
Quarter: 2009Q3

REPORT INFORMATION
  Report Type: 
  Country: None (occurrence: None)
  Receive Date: 20090831
  Receipt Date: 20090818
  Transmission Date: 20100115
  Serious: Yes (Other)
  Sender: FDA-Public Use
  Company Number: 2009010059

PATIENT
  Age: 37 Year
  Sex: Female

DRUGS (7)
  1. OPTIVAR [Suspect]
     Dosage: OPHTHALMIC
     Route: 047
     Dates: start: 20090101, end: 20090101
  2. HYDROCODONE BIT/ACETAMINOPHEN (HYDROCODONE BITARTRATE, ACETAMINOPHEN) [Concomitant]
  3. BENZONATATE (BENSONATATE) [Concomitant]
  4. ALLEGRA (FEXOFENADINE HCL) [Concomitant]
  5. AMITRIPTYLINE HCL [Concomitant]
  6. DIAZEPAM [Concomitant]
  7. ALPRAZOLAM [Concomitant]

REACTIONS (9)
  - ASTHENOPIA [None]
  - CATARACT [None]
  - CONJUNCTIVITIS ALLERGIC [None]
  - DIPLOPIA [None]
  - GLARE [None]
  - GLAUCOMA [None]
  - HEADACHE [None]
  - MADAROSIS [None]
  - VISION BLURRED [None]
